FAERS Safety Report 4767684-X (Version None)
Quarter: 2005Q3

REPORT INFORMATION
  Report Type: 
  Country: None (occurrence: None)
  Receive Date: 20050912
  Receipt Date: 20050902
  Transmission Date: 20060218
  Serious: Yes (Other)
  Sender: FDA-Public Use
  Company Number: 200507722

PATIENT
  Age: 50 Year
  Sex: Female

DRUGS (4)
  1. BOTOX COSMETIC [Suspect]
     Indication: SKIN WRINKLING
     Dates: start: 20050201, end: 20050201
  2. BOTOX COSMETIC [Suspect]
     Indication: SKIN WRINKLING
     Dates: start: 20050701, end: 20050701
  3. IOPIDENE [Concomitant]
  4. ANTIBIOTIC SOLUTION [Concomitant]

REACTIONS (3)
  - EYELID PTOSIS [None]
  - FATIGUE [None]
  - MYASTHENIA GRAVIS [None]
